FAERS Safety Report 7092476-9 (Version None)
Quarter: 2010Q4

REPORT INFORMATION
  Report Type: 
  Country: None (occurrence: None)
  Receive Date: 20101108
  Receipt Date: 20101108
  Transmission Date: 20110411
  Serious: No
  Sender: FDA-Public Use
  Company Number: None

PATIENT
  Sex: Male
  Weight: 102.3 kg

DRUGS (9)
  1. MERCAPTOPURINE [Suspect]
     Dosage: 3800 MG
     Dates: end: 20100725
  2. METHOTREXATE [Suspect]
     Dosage: 60 MG
     Dates: end: 20100702
  3. PEG-L- ASPARAGINASE (PEGASPARGASE, ONCOSPAR) [Suspect]
     Dosage: 11275 IU
     Dates: end: 20100726
  4. VINCRISTINE SULFATE [Suspect]
     Dosage: 8 MG
     Dates: end: 20100802
  5. CYCLOPHOSPHAMIDE [Suspect]
     Dosage: 4530 MG
     Dates: end: 20100712
  6. CYTARABINE [Suspect]
     Dosage: 2712 MG
     Dates: end: 20100722
  7. ACTIGAL [Concomitant]
  8. BACTRIM [Concomitant]
  9. PREVACID [Concomitant]

REACTIONS (6)
  - ALANINE AMINOTRANSFERASE INCREASED [None]
  - ASPARTATE AMINOTRANSFERASE INCREASED [None]
  - BLOOD CHOLESTEROL INCREASED [None]
  - BLOOD GLUCOSE INCREASED [None]
  - BLOOD TRIGLYCERIDES INCREASED [None]
  - HYPERBILIRUBINAEMIA [None]
